FAERS Safety Report 5400446-9 (Version None)
Quarter: 2007Q3

REPORT INFORMATION
  Report Type: 
  Country: None (occurrence: None)
  Receive Date: 20070730
  Receipt Date: 20070719
  Transmission Date: 20080115
  Serious: Yes (Other)
  Sender: FDA-Public Use
  Company Number: D0053444A

PATIENT
  Age: 82 Year
  Sex: Male
  Weight: 73 kg

DRUGS (10)
  1. AVANDAMET [Suspect]
     Indication: DIABETES MELLITUS
     Dosage: 502MG TWICE PER DAY
     Route: 048
     Dates: start: 20041201, end: 20070701
  2. RAMIPRIL [Suspect]
     Route: 065
     Dates: start: 20041201, end: 20070701
  3. HYDROCHLOROTHIAZIDE [Concomitant]
     Route: 065
     Dates: start: 20041201, end: 20070701
  4. METOPROLOL SUCCINATE [Concomitant]
     Route: 065
     Dates: start: 20041201, end: 20070701
  5. ASPIRIN [Concomitant]
     Route: 065
     Dates: start: 20041201, end: 20070701
  6. ALLOPURINOL [Concomitant]
     Route: 065
  7. PANTOPRAZOL [Concomitant]
     Route: 065
  8. SIMVASTATIN [Concomitant]
     Route: 065
  9. LERCANIDIPINE [Concomitant]
     Route: 065
  10. TORSEMIDE [Concomitant]
     Route: 065

REACTIONS (2)
  - BLOOD CREATININE INCREASED [None]
  - RENAL FAILURE [None]
